FAERS Safety Report 13025167 (Version 3)
Quarter: 2016Q4

REPORT INFORMATION
  Report Type: Spontaneous
  Country: IT (occurrence: IT)
  Receive Date: 20161214
  Receipt Date: 20161223
  Transmission Date: 20170207
  Serious: Yes (Other)
  Sender: FDA-Public Use
  Company Number: IT-ROCHE-1866302

PATIENT
  Age: 50 Year
  Sex: Female
  Weight: 71 kg

DRUGS (4)
  1. IRINOTECAN HYDROCHLORIDE TRIHYDRATE [Suspect]
     Active Substance: IRINOTECAN HYDROCHLORIDE
     Indication: ADENOCARCINOMA OF COLON
     Dosage: MOST RECENT DOSE PRIOR TO ALOPECIA: 12/AUG/2016
     Route: 042
     Dates: start: 20160728
  2. XELODA [Suspect]
     Active Substance: CAPECITABINE
     Indication: ADENOCARCINOMA OF COLON
     Dosage: MOST RECENT DOSE ON 19/MAY/2016
     Route: 048
     Dates: start: 20160225
  3. AVASTIN [Suspect]
     Active Substance: BEVACIZUMAB
     Indication: ADENOCARCINOMA OF COLON
     Route: 042
     Dates: start: 20160225, end: 20160519
  4. AVASTIN [Suspect]
     Active Substance: BEVACIZUMAB
     Dosage: MOST RECENT DOSE PRIOR TO ALOPECIA: 12/AUG/2016
     Route: 042
     Dates: start: 20160728

REACTIONS (7)
  - Alopecia [Unknown]
  - Stomatitis [Recovering/Resolving]
  - Pyrexia [Recovering/Resolving]
  - Dysgeusia [Recovering/Resolving]
  - Anaemia [Recovering/Resolving]
  - Neutropenia [Recovering/Resolving]
  - Constipation [Recovering/Resolving]

NARRATIVE: CASE EVENT DATE: 20160301
